FAERS Safety Report 22244718 (Version 2)
Quarter: 2024Q3

REPORT INFORMATION
  Report Type: Spontaneous
  Country: IT (occurrence: IT)
  Receive Date: 20230424
  Receipt Date: 20240903
  Transmission Date: 20241016
  Serious: Yes (Other)
  Sender: CELLTRION
  Company Number: IT-CELLTRION INC.-2023IT008189

PATIENT

DRUGS (8)
  1. RITUXIMAB [Suspect]
     Active Substance: RITUXIMAB
     Indication: Product used for unknown indication
     Dosage: 375.0 MG/M2
     Route: 042
     Dates: start: 20191118, end: 20200407
  2. CYTARABINE [Suspect]
     Active Substance: CYTARABINE
     Indication: Product used for unknown indication
     Dosage: 500 MG/M2 FOR 3 DAYS FOR EACH CYCLE.
     Route: 042
     Dates: start: 20191119, end: 20200409
  3. BENDAMUSTINE [Suspect]
     Active Substance: BENDAMUSTINE
     Indication: Product used for unknown indication
     Dosage: 70 MG/M2 FOR 2 DAYS, FOR EACH CYCLE
     Route: 042
     Dates: start: 20191119, end: 20200409
  4. VENETOCLAX [Suspect]
     Active Substance: VENETOCLAX
     Indication: Product used for unknown indication
     Dosage: 400 MG
     Route: 048
     Dates: start: 20201211, end: 20220906
  5. VENETOCLAX [Suspect]
     Active Substance: VENETOCLAX
     Dosage: 800 MG
     Route: 048
     Dates: start: 20200813, end: 20201207
  6. RAMIPRIL [Concomitant]
     Active Substance: RAMIPRIL
     Indication: Product used for unknown indication
     Dosage: UNK
     Route: 065
     Dates: start: 20200109
  7. DIAZEPAM [Concomitant]
     Active Substance: DIAZEPAM
     Indication: Product used for unknown indication
     Dosage: UNK
     Route: 065
     Dates: start: 20200109
  8. AMLODIPINE MALEATE [Concomitant]
     Active Substance: AMLODIPINE MALEATE
     Indication: Product used for unknown indication
     Dosage: UNK
     Route: 065
     Dates: start: 20200323

REACTIONS (2)
  - Clear cell renal cell carcinoma [Recovered/Resolved]
  - COVID-19 [Unknown]

NARRATIVE: CASE EVENT DATE: 20230331
